FAERS Safety Report 11810970 (Version 1)
Quarter: 2015Q4

REPORT INFORMATION
  Report Type: Spontaneous
  Country: US (occurrence: US)
  Receive Date: 20151208
  Receipt Date: 20151208
  Transmission Date: 20160305
  Serious: Yes (Hospitalization)
  Sender: FDA-Public Use
  Company Number: PHEH2015US025466

PATIENT
  Sex: Female

DRUGS (2)
  1. PROGRAF [Suspect]
     Active Substance: TACROLIMUS\TACROLIMUS ANHYDROUS
     Indication: TRANSPLANT
     Dosage: 1 MG, 3 CAPSULE EVERY AM AND 2 CAPSULES EVERY PM
     Route: 048
     Dates: start: 201508
  2. MYFORTIC [Suspect]
     Active Substance: MYCOPHENOLATE SODIUM
     Indication: TRANSPLANT
     Dosage: 180 MG, 2 TABLETS EVERY AM AND 1 TABLET EVERY PM
     Route: 048
     Dates: start: 201507

REACTIONS (1)
  - Pneumonia [Unknown]
